FAERS Safety Report 14007158 (Version 1)
Quarter: 2017Q3

REPORT INFORMATION
  Report Type: Spontaneous
  Country: US (occurrence: US)
  Receive Date: 20170924
  Receipt Date: 20170924
  Transmission Date: 20171128
  Serious: No
  Sender: FDA-Public Use
  Company Number: None

PATIENT
  Age: 32 Year
  Sex: Female
  Weight: 74.25 kg

DRUGS (1)
  1. NIPHEDEPINE [Suspect]
     Active Substance: NIFEDIPINE
     Indication: PRE-ECLAMPSIA
     Route: 048
     Dates: start: 20170519, end: 20170605

REACTIONS (2)
  - Pain [None]
  - Neck pain [None]

NARRATIVE: CASE EVENT DATE: 20170531
